FAERS Safety Report 4757213-9 (Version None)
Quarter: 2005Q3

REPORT INFORMATION
  Report Type: 
  Country: None (occurrence: None)
  Receive Date: 20050829
  Receipt Date: 20050824
  Transmission Date: 20060218
  Serious: Yes (Hospitalization)
  Sender: FDA-Public Use
  Company Number: 2005-08-1701

PATIENT
  Age: 72 Year
  Sex: Male

DRUGS (1)
  1. PEG-INTRON [Suspect]
     Dosage: 1 DOSE (S)

REACTIONS (3)
  - MUSCLE TWITCHING [None]
  - MYOCLONUS [None]
  - SPEECH DISORDER [None]
